FAERS Safety Report 7916826-3 (Version None)
Quarter: 2011Q4

REPORT INFORMATION
  Report Type: 
  Country: None (occurrence: None)
  Receive Date: 20111116
  Receipt Date: 20111110
  Transmission Date: 20120403
  Serious: Yes (Hospitalization)
  Sender: FDA-Public Use
  Company Number: FR-MYLANLABS-2011S1022629

PATIENT
  Age: 10 Year
  Sex: Female
  Weight: 49.6 kg

DRUGS (14)
  1. MORPHINE [Suspect]
     Indication: PRODUCT USED FOR UNKNOWN INDICATION
     Dates: start: 20111003, end: 20111005
  2. ETOPOSIDE [Suspect]
     Indication: BONE SARCOMA
     Dates: end: 20110901
  3. IFOSFAMIDE [Suspect]
     Indication: BONE SARCOMA
     Dates: end: 20110901
  4. LEUCOVORIN CALCIUM [Concomitant]
     Indication: PRODUCT USED FOR UNKNOWN INDICATION
  5. NUBAIN [Suspect]
     Indication: PAIN
     Dates: start: 20110928, end: 20111003
  6. AMOXICILLIN [Suspect]
     Indication: PRODUCT USED FOR UNKNOWN INDICATION
     Dates: start: 20111002, end: 20111008
  7. ETOPOSIDE [Concomitant]
     Indication: PRODUCT USED FOR UNKNOWN INDICATION
  8. ZOMETA [Concomitant]
     Indication: PRODUCT USED FOR UNKNOWN INDICATION
  9. METHOTREXATE [Suspect]
     Indication: BONE SARCOMA
     Route: 042
     Dates: end: 20110926
  10. ZOFRAN [Concomitant]
     Indication: PRODUCT USED FOR UNKNOWN INDICATION
  11. AMIKACIN [Suspect]
     Indication: PRODUCT USED FOR UNKNOWN INDICATION
     Dates: start: 20111002, end: 20111008
  12. UROMITEXAN [Concomitant]
     Indication: PRODUCT USED FOR UNKNOWN INDICATION
  13. PLITICAN [Concomitant]
     Indication: PRODUCT USED FOR UNKNOWN INDICATION
  14. ZOFRAN [Concomitant]

REACTIONS (4)
  - HYPERPYREXIA [None]
  - LEUKOENCEPHALOPATHY [None]
  - MUCOSAL INFLAMMATION [None]
  - LEUKOPENIA [None]
